FAERS Safety Report 14290255 (Version 1)
Quarter: 2017Q4

REPORT INFORMATION
  Report Type: Report from Study
  Country: BR (occurrence: BR)
  Receive Date: 20171215
  Receipt Date: 20171215
  Transmission Date: 20180321
  Serious: Yes (Death, Other)
  Sender: FDA-Public Use
  Company Number: PHHY2017BR118257

PATIENT
  Sex: Female
  Weight: 56 kg

DRUGS (1)
  1. VOTRIENT [Suspect]
     Active Substance: PAZOPANIB HYDROCHLORIDE
     Indication: METASTATIC RENAL CELL CARCINOMA
     Dosage: 2 DF (800 MG), QD
     Route: 048
     Dates: start: 201706, end: 20171123

REACTIONS (12)
  - Malignant neoplasm progression [Not Recovered/Not Resolved]
  - Renal cell carcinoma [Not Recovered/Not Resolved]
  - Dysstasia [Not Recovered/Not Resolved]
  - Death [Fatal]
  - Metastases to liver [Not Recovered/Not Resolved]
  - Metastases to thorax [Unknown]
  - Metastases to lung [Not Recovered/Not Resolved]
  - Malaise [Unknown]
  - Dysphagia [Not Recovered/Not Resolved]
  - Metastases to bone [Not Recovered/Not Resolved]
  - Pain [Unknown]
  - Drug ineffective [Not Recovered/Not Resolved]
